FAERS Safety Report 6942940-5 (Version None)
Quarter: 2010Q3

REPORT INFORMATION
  Report Type: 
  Country: None (occurrence: None)
  Receive Date: 20100825
  Receipt Date: 20100825
  Transmission Date: 20110219
  Serious: Yes (Hospitalization)
  Sender: FDA-Public Use
  Company Number: None

PATIENT
  Sex: Male
  Weight: 94.8 kg

DRUGS (10)
  1. REVLIMID [Suspect]
     Indication: PROSTATE CANCER
     Dosage: 25MG QD X21 PO
     Route: 048
     Dates: start: 20100428, end: 20100811
  2. ZOMETA [Concomitant]
  3. M.V.I. [Concomitant]
  4. ZOLOFT [Concomitant]
  5. CALCIUM [Concomitant]
  6. ASPIRIN [Concomitant]
  7. TOPROL-XL [Concomitant]
  8. VOLTAREN [Concomitant]
  9. VALIUM [Concomitant]
  10. LISINOPRIL [Concomitant]

REACTIONS (1)
  - MYOCARDIAL INFARCTION [None]
